FAERS Safety Report 5689888-4 (Version None)
Quarter: 2008Q1

REPORT INFORMATION
  Report Type: 
  Country: None (occurrence: None)
  Receive Date: 20080331
  Receipt Date: 20080331
  Transmission Date: 20080703
  Serious: Yes (Life-Threatening)
  Sender: FDA-Public Use
  Company Number: None

PATIENT
  Sex: Female
  Weight: 69.8539 kg

DRUGS (1)
  1. DURAGESIC-25 [Suspect]
     Indication: MUSCULOSKELETAL PAIN
     Dosage: 25UG EVERY 3 DAYS-?- TRANSDERMAL
     Route: 062
     Dates: start: 20061024, end: 20061025

REACTIONS (4)
  - COMA [None]
  - PNEUMONIA [None]
  - SEPSIS [None]
  - URINARY TRACT INFECTION [None]
